FAERS Safety Report 4723159-5 (Version None)
Quarter: 2005Q3

REPORT INFORMATION
  Report Type: 
  Country: None (occurrence: None)
  Receive Date: 20050719
  Receipt Date: 20040801
  Transmission Date: 20060218
  Serious: Yes (Other)
  Sender: FDA-Public Use
  Company Number: 2004226282US

PATIENT
  Sex: 0

DRUGS (3)
  1. CELEBREX [Suspect]
     Route: 065
  2. VICODIN [Suspect]
     Route: 065
  3. DARVOCET-N (DEXTROPROPOXYPHENE NAPSILATE) [Concomitant]

REACTIONS (1)
  - PEPTIC ULCER HAEMORRHAGE [None]
